FAERS Safety Report 8774229 (Version 1)
Quarter: 2012Q4

REPORT INFORMATION
  Report Type: 
  Country: IT (occurrence: IT)
  Receive Date: 20120907
  Receipt Date: 20120907
  Transmission Date: 20130627
  Serious: Yes (Death, Other)
  Sender: FDA-Public Use
  Company Number: IT-CELGENEUS-083-21880-12083367

PATIENT

DRUGS (7)
  1. REVLIMID [Suspect]
     Indication: DIFFUSE LARGE B-CELL LYMPHOMA
     Dosage: 15 Milligram
     Route: 048
  2. RITUXIMAB [Suspect]
     Indication: DIFFUSE LARGE B-CELL LYMPHOMA
     Route: 065
  3. CYCLOPHOSPHAMIDE [Suspect]
     Indication: DIFFUSE LARGE B-CELL LYMPHOMA
     Route: 065
  4. DOXORUBICIN [Suspect]
     Indication: DIFFUSE LARGE B-CELL LYMPHOMA
     Route: 065
  5. ONCOVIN [Suspect]
     Indication: DIFFUSE LARGE B-CELL LYMPHOMA
     Route: 065
  6. PREDNISONE [Suspect]
     Indication: DIFFUSE LARGE B-CELL LYMPHOMA
     Route: 065
  7. COTRIMOXAZOLE [Concomitant]
     Indication: PROPHYLAXIS
     Route: 065

REACTIONS (12)
  - Nephropathy toxic [Unknown]
  - Cardiotoxicity [Unknown]
  - Gastrointestinal toxicity [Unknown]
  - Death [Fatal]
  - Neutropenia [Unknown]
  - Thrombocytopenia [Unknown]
  - Embolism [Unknown]
  - Anaemia [Unknown]
  - Febrile neutropenia [Unknown]
  - No therapeutic response [Unknown]
  - Peripheral sensory neuropathy [Unknown]
  - Rash [Unknown]
